FAERS Safety Report 8305014-7 (Version None)
Quarter: 2012Q2

REPORT INFORMATION
  Report Type: 
  Country: None (occurrence: None)
  Receive Date: 20120411
  Receipt Date: 20120330
  Transmission Date: 20120825
  Serious: Yes (Other)
  Sender: FDA-Public Use
  Company Number: 2012031024

PATIENT
  Sex: Male

DRUGS (2)
  1. SULFAMETHOXAZOLE AND TRIMETHOPRIM [Suspect]
  2. NOT ON IVIG THERAPY WITH A CSL BEHRING PRODUCT [Suspect]

REACTIONS (3)
  - ADVERSE EVENT [None]
  - GRANULOMA SKIN [None]
  - TONGUE CANCER RECURRENT [None]
